FAERS Safety Report 19893044 (Version 1)
Quarter: 2021Q3

REPORT INFORMATION
  Report Type: Report from Study
  Country: US (occurrence: US)
  Receive Date: 20210929
  Receipt Date: 20210929
  Transmission Date: 20211014
  Serious: No
  Sender: FDA-Public Use
  Company Number: US-IPSEN BIOPHARMACEUTICALS, INC.-2021-23118

PATIENT
  Age: 68 Year
  Sex: Female

DRUGS (1)
  1. SOMATULINE DEPOT [Suspect]
     Active Substance: LANREOTIDE ACETATE
     Indication: NEUROENDOCRINE CARCINOMA METASTATIC
     Dosage: 120 MG/0.5ML
     Route: 058
     Dates: start: 202007

REACTIONS (2)
  - Haemoglobin decreased [Recovering/Resolving]
  - Injection site mass [Recovering/Resolving]

NARRATIVE: CASE EVENT DATE: 202007
